FAERS Safety Report 14785123 (Version 6)
Quarter: 2022Q3

REPORT INFORMATION
  Report Type: Spontaneous
  Country: RO (occurrence: RO)
  Receive Date: 20180420
  Receipt Date: 20220722
  Transmission Date: 20221027
  Serious: Yes (Death, Other)
  Sender: FDA-Public Use
  Company Number: RO-INCYTE CORPORATION-2018IN001566

PATIENT
  Age: 61 Year
  Sex: Female
  Weight: 93 kg

DRUGS (17)
  1. CYTARABINE [Suspect]
     Active Substance: CYTARABINE
     Dosage: HYPER CVAD PROTOCOL
     Route: 065
  2. DOXORUBICIN HYDROCHLORIDE [Suspect]
     Active Substance: DOXORUBICIN HYDROCHLORIDE
     Dosage: HYPER CVAD PROTOCOL
     Route: 065
  3. METHYLPREDNISOLONE [Suspect]
     Active Substance: METHYLPREDNISOLONE
     Dosage: HYPER CVAD PROTOCOL
     Route: 065
  4. CYCLOPHOSPHAMIDE [Suspect]
     Active Substance: CYCLOPHOSPHAMIDE
     Dosage: HYPER CVAD PROTOCOL
     Route: 065
  5. DEXAMETHASONE [Suspect]
     Active Substance: DEXAMETHASONE
     Dosage: 4 MG, HYPER CVAD PROTOCOL
     Route: 042
     Dates: start: 20180109
  6. LEUCOVORIN [Suspect]
     Active Substance: LEUCOVORIN
     Dosage: HYPER CVAD PROTOCOL
     Route: 065
  7. VINCRISTINE [Suspect]
     Active Substance: VINCRISTINE
     Dosage: HYPER CVAD PROTOCOL
     Route: 065
  8. ICLUSIG [Suspect]
     Active Substance: PONATINIB
     Indication: Philadelphia positive acute lymphocytic leukaemia
     Dosage: 45 MG, DAILY
     Route: 048
     Dates: start: 20170905, end: 20180112
  9. ICLUSIG [Suspect]
     Active Substance: PONATINIB
     Dosage: 135 UNK
  10. CEFTAZIDIME [Suspect]
     Active Substance: CEFTAZIDIME
     Indication: Skin infection
     Dosage: 1 G, UNK
     Route: 042
     Dates: start: 20180112, end: 20180113
  11. METHOTREXATE [Suspect]
     Active Substance: METHOTREXATE
     Dosage: 15 MG, HYPER CVAD PROTOCOL
     Route: 037
  12. METHOTREXATE [Concomitant]
     Active Substance: METHOTREXATE
     Dosage: 15 MG, UNK
     Route: 037
  13. CYTARABINE [Concomitant]
     Active Substance: CYTARABINE
     Dosage: 40 MG, 1X/DAY (QD)
     Route: 048
     Dates: start: 20180110, end: 20180111
  14. FILGRASTIM [Concomitant]
     Active Substance: FILGRASTIM
     Dosage: UNK
     Route: 065
  15. TARGOCID [Concomitant]
     Active Substance: TEICOPLANIN
     Dosage: 400 MG, UNK
     Route: 048
  16. FLUCONAZOLE [Concomitant]
     Active Substance: FLUCONAZOLE
     Dosage: UNK
  17. ALLOPURINOL [Concomitant]
     Active Substance: ALLOPURINOL
     Dosage: UNK

REACTIONS (4)
  - Dermatitis bullous [Fatal]
  - Staphylococcal sepsis [Fatal]
  - Septic shock [Fatal]
  - Rash [Recovering/Resolving]

NARRATIVE: CASE EVENT DATE: 20170920
